FAERS Safety Report 5036652-5 (Version None)
Quarter: 2006Q2

REPORT INFORMATION
  Report Type: 
  Country: None (occurrence: None)
  Receive Date: 20060601
  Receipt Date: 20060410
  Transmission Date: 20061013
  Serious: No
  Sender: FDA-Public Use
  Company Number: US200604001658

PATIENT
  Age: 72 Year
  Sex: Male

DRUGS (2)
  1. CYMBALTA [Suspect]
     Indication: ANXIETY
     Dosage: SEE IMAGE
     Dates: start: 20060301, end: 20060409
  2. CYMBALTA [Suspect]
     Indication: ANXIETY
     Dosage: SEE IMAGE
     Dates: start: 20060410

REACTIONS (6)
  - ABDOMINAL DISTENSION [None]
  - CONSTIPATION [None]
  - DISTURBANCE IN ATTENTION [None]
  - DIZZINESS [None]
  - FEELING ABNORMAL [None]
  - MALAISE [None]
